FAERS Safety Report 9108298 (Version 1)
Quarter: 2013Q1

REPORT INFORMATION
  Report Type: Report from Study
  Country: US (occurrence: US)
  Receive Date: 20130222
  Receipt Date: 20130222
  Transmission Date: 20140127
  Serious: Yes (Death, Hospitalization, Other)
  Sender: FDA-Public Use
  Company Number: US-ASTELLAS-2013US001053

PATIENT
  Age: 64 None
  Sex: Female

DRUGS (1)
  1. ERLOTINIB TABLET [Suspect]
     Indication: LUNG NEOPLASM MALIGNANT
     Dosage: 150 MG, UID/QD
     Route: 048
     Dates: start: 20110405, end: 20130116

REACTIONS (16)
  - Drug ineffective [Unknown]
  - Cardiac arrest [Fatal]
  - Type 2 diabetes mellitus [Fatal]
  - Orthostatic hypotension [Recovered/Resolved]
  - Hypophagia [Recovering/Resolving]
  - Hypoglycaemia [Unknown]
  - Upper limb fracture [Unknown]
  - Renal failure acute [Recovering/Resolving]
  - Hypovolaemia [Unknown]
  - Dehydration [Unknown]
  - Metastases to bone [Unknown]
  - Non-small cell lung cancer [Fatal]
  - Renal failure chronic [Unknown]
  - Hypertension [Unknown]
  - Neuropathy peripheral [Unknown]
  - Malignant neoplasm progression [Fatal]
